FAERS Safety Report 5161067-9 (Version None)
Quarter: 2006Q4

REPORT INFORMATION
  Report Type: 
  Country: None (occurrence: None)
  Receive Date: 20061121
  Receipt Date: 20061113
  Transmission Date: 20070319
  Serious: Yes (Hospitalization)
  Sender: FDA-Public Use
  Company Number: 2006AL002550

PATIENT
  Age: 34 Year
  Sex: Female

DRUGS (3)
  1. DICLOFENAC SODIUM [Suspect]
     Indication: ARTHRALGIA
     Dosage: 50 MG; TID; PO
     Route: 048
     Dates: end: 20061006
  2. NEORAL [Concomitant]
  3. ENALAPRIL MALEATE [Concomitant]

REACTIONS (1)
  - ANAPHYLACTIC REACTION [None]
